FAERS Safety Report 19887839 (Version 3)
Quarter: 2021Q4

REPORT INFORMATION
  Report Type: Report from Study
  Country: FR (occurrence: None)
  Receive Date: 20210928
  Receipt Date: 20211105
  Transmission Date: 20220303
  Serious: Yes (Hospitalization)
  Sender: FDA-Public Use
  Company Number: FR-ROCHE-2916372

PATIENT
  Age: 63 Year
  Sex: Male
  Weight: 116 kg

DRUGS (25)
  1. ATEZOLIZUMAB [Suspect]
     Active Substance: ATEZOLIZUMAB
     Indication: Bladder cancer
     Dosage: 17 CYCLES * 1200 MG = 20400 MG TOTAL DOSE??26/MAR/2021, MOST RECENT DOSE.
     Route: 042
     Dates: start: 20200925, end: 20210827
  2. BCG VACCINE [Suspect]
     Active Substance: BCG VACCINE
     Indication: Bladder cancer
     Route: 043
     Dates: start: 20200925, end: 20210326
  3. ALPRAZOLAM [Concomitant]
     Active Substance: ALPRAZOLAM
     Route: 048
  4. OXYCODONE [Concomitant]
     Active Substance: OXYCODONE
     Route: 048
  5. MINERAL OIL [Concomitant]
     Active Substance: MINERAL OIL
     Route: 048
  6. POLYETHYLENE GLYCOLS [Concomitant]
     Active Substance: POLYETHYLENE GLYCOLS
     Route: 048
  7. PHLOROGLUCINOL [Concomitant]
     Active Substance: PHLOROGLUCINOL
     Indication: Nausea
     Route: 048
  8. METOPIMAZINE [Concomitant]
     Active Substance: METOPIMAZINE
     Indication: Nausea
     Route: 048
  9. PREGABALIN [Concomitant]
     Active Substance: PREGABALIN
     Route: 048
  10. CANDESARTAN [Concomitant]
     Active Substance: CANDESARTAN
  11. URAPIDIL [Concomitant]
     Active Substance: URAPIDIL
  12. NICARDIPINE [Concomitant]
     Active Substance: NICARDIPINE
  13. CLOPIDOGREL [Concomitant]
     Active Substance: CLOPIDOGREL BISULFATE
  14. ATORVASTATIN [Concomitant]
     Active Substance: ATORVASTATIN
  15. ACETAMINOPHEN [Concomitant]
     Active Substance: ACETAMINOPHEN
  16. ESOMEPRAZOLE [Concomitant]
     Active Substance: ESOMEPRAZOLE
  17. NALOXEGOL [Concomitant]
     Active Substance: NALOXEGOL
  18. LEVOFLOXACIN [Concomitant]
     Active Substance: LEVOFLOXACIN
  19. AMOXICILLIN [Concomitant]
     Active Substance: AMOXICILLIN
  20. DULOXETINE [Concomitant]
     Active Substance: DULOXETINE
  21. PREGABALIN [Concomitant]
     Active Substance: PREGABALIN
  22. DAPTOMYCIN [Concomitant]
     Active Substance: DAPTOMYCIN
  23. CEFTRIAXONE SODIUM [Concomitant]
     Active Substance: CEFTRIAXONE SODIUM
  24. CEFEPIME [Concomitant]
     Active Substance: CEFEPIME HYDROCHLORIDE
  25. PIPERACILLIN [Concomitant]
     Active Substance: PIPERACILLIN

REACTIONS (2)
  - Perforated ulcer [Recovered/Resolved with Sequelae]
  - Septic shock [Recovered/Resolved with Sequelae]

NARRATIVE: CASE EVENT DATE: 20210916
